FAERS Safety Report 9199537 (Version 1)
Quarter: 2013Q1

REPORT INFORMATION
  Report Type: Spontaneous
  Country: US (occurrence: US)
  Receive Date: 20130329
  Receipt Date: 20130329
  Transmission Date: 20140127
  Serious: No
  Sender: FDA-Public Use
  Company Number: US-GLAXOSMITHKLINE-A0944878A

PATIENT
  Age: 59 Year
  Sex: Female
  Weight: 97.61 kg

DRUGS (16)
  1. BENLYSTA [Suspect]
     Indication: SYSTEMIC LUPUS ERYTHEMATOSUS
     Dosage: 10NGK MONTHLY
     Route: 042
     Dates: start: 20110714
  2. PLAQUENIL [Concomitant]
     Dosage: 200MG PER DAY
     Route: 048
  3. PREDNISONE [Concomitant]
     Dosage: 5MG PER DAY
     Route: 048
  4. IMURAN [Concomitant]
     Dosage: 50MG PER DAY
     Route: 048
  5. NAPROSYN [Concomitant]
  6. NEXIUM [Concomitant]
     Dosage: 40MG PER DAY
     Route: 048
  7. METOPROLOL [Concomitant]
     Dosage: 50MG PER DAY
     Route: 048
  8. LISINOPRIL [Concomitant]
     Dosage: 5MG PER DAY
     Route: 048
  9. CRESTOR [Concomitant]
     Dosage: 20MG PER DAY
     Route: 048
  10. LEVOTHYROXINE [Concomitant]
     Dosage: .05MG PER DAY
     Route: 048
  11. VIVELLE [Concomitant]
  12. LASIX [Concomitant]
     Dosage: 20MG PER DAY
     Route: 048
  13. KLOR-CON [Concomitant]
     Dosage: 20MEQ PER DAY
     Route: 048
  14. PAROXETINE [Concomitant]
     Dosage: 20MG PER DAY
     Route: 048
  15. VITAMIN D [Concomitant]
     Route: 048
  16. OSCAL D [Concomitant]
     Dosage: 500MG PER DAY
     Route: 048

REACTIONS (8)
  - Arthralgia [Not Recovered/Not Resolved]
  - Fatigue [Recovering/Resolving]
  - Rash [Recovering/Resolving]
  - Diarrhoea [Unknown]
  - Headache [Unknown]
  - Cold sweat [Not Recovered/Not Resolved]
  - Chest discomfort [Not Recovered/Not Resolved]
  - Temperature intolerance [Not Recovered/Not Resolved]
